FAERS Safety Report 15573379 (Version 1)
Quarter: 2018Q4

REPORT INFORMATION
  Report Type: Report from Study
  Country: US (occurrence: US)
  Receive Date: 20181101
  Receipt Date: 20181101
  Transmission Date: 20190205
  Serious: Yes (Other)
  Sender: FDA-Public Use
  Company Number: US-ROCHE-2205911

PATIENT
  Sex: Female

DRUGS (3)
  1. TRASTUZUMAB. [Suspect]
     Active Substance: TRASTUZUMAB
     Indication: BREAST CANCER
     Dosage: LOADING DOSE
     Route: 042
     Dates: start: 20160714, end: 20160714
  2. SARGRAMOSTIM [Suspect]
     Active Substance: SARGRAMOSTIM
     Indication: BREAST CANCER
     Route: 023
     Dates: start: 20160827, end: 20180510
  3. TRASTUZUMAB. [Suspect]
     Active Substance: TRASTUZUMAB
     Dosage: MAINTENANCE DOSE
     Route: 042
     Dates: start: 20160805, end: 20180510

REACTIONS (1)
  - Autoimmune disorder [Recovered/Resolved]

NARRATIVE: CASE EVENT DATE: 20170601
